FAERS Safety Report 4417308-6 (Version None)
Quarter: 2004Q2

REPORT INFORMATION
  Report Type: 
  Country: None (occurrence: None)
  Receive Date: 20040629
  Receipt Date: 20031110
  Transmission Date: 20050107
  Serious: Yes (Hospitalization, Other)
  Sender: FDA-Public Use
  Company Number: US_030896835

PATIENT
  Age: 73 Year
  Sex: Male

DRUGS (7)
  1. HUMALOG [Suspect]
     Indication: DIABETES MELLITUS
     Dosage: 30 U/2 DAY
  2. LOPID (GENFIBROZIL) [Concomitant]
  3. ACTOS [Concomitant]
  4. COZAAR (LASARTAN POTASSIUM) [Concomitant]
  5. ACETYLSALICYLIC ACID SRT [Concomitant]
  6. GLYBURIDE [Concomitant]
  7. TENORMIN [Concomitant]

REACTIONS (4)
  - BLOOD GLUCOSE INCREASED [None]
  - HYPERTENSION [None]
  - MYOCARDIAL INFARCTION [None]
  - VISION BLURRED [None]
